FAERS Safety Report 20789027 (Version 3)
Quarter: 2022Q2

REPORT INFORMATION
  Report Type: Report from Study
  Country: BR (occurrence: BR)
  Receive Date: 20220505
  Receipt Date: 20220630
  Transmission Date: 20220721
  Serious: Yes (Other)
  Sender: FDA-Public Use
  Company Number: BR-JNJFOC-20220458586

PATIENT
  Age: 66 Year
  Sex: Female

DRUGS (7)
  1. SPRAVATO [Suspect]
     Active Substance: ESKETAMINE
     Indication: Major depression
     Dosage: CONFLICTINGLY REPORTED AS POSOLOGY 56 MG 2 DEVICES
     Dates: start: 20220412
  2. SPRAVATO [Suspect]
     Active Substance: ESKETAMINE
     Dates: start: 20220614
  3. SPRAVATO [Suspect]
     Active Substance: ESKETAMINE
     Dates: start: 20220621
  4. AMLODIPINE [Concomitant]
     Active Substance: AMLODIPINE BESYLATE
  5. GLIFAGE [Concomitant]
     Active Substance: METFORMIN HYDROCHLORIDE
  6. GLYXAMBI [Concomitant]
     Active Substance: EMPAGLIFLOZIN\LINAGLIPTIN
  7. AMITRIPTYLINE HYDROCHLORIDE [Concomitant]
     Active Substance: AMITRIPTYLINE HYDROCHLORIDE

REACTIONS (2)
  - Blood pressure increased [Unknown]
  - Influenza [Unknown]

NARRATIVE: CASE EVENT DATE: 20220101
